FAERS Safety Report 7821057 (Version 4)
Quarter: 2013Q2

REPORT INFORMATION
  Report Type: Report from Study
  Country: US (occurrence: US)
  Receive Date: 20110222
  Receipt Date: 20130503
  Transmission Date: 20140414
  Serious: Yes (Death, Hospitalization)
  Sender: FDA-Public Use
  Company Number: US-ACTELION-A-NJ2011-44981

PATIENT
  Age: 60 Year
  Sex: Female

DRUGS (1)
  1. TRACLEER [Suspect]
     Indication: PULMONARY ARTERIAL HYPERTENSION
     Dosage: 125 MG, BID
     Route: 048
     Dates: start: 20041201

REACTIONS (6)
  - Death [Fatal]
  - Syncope [Unknown]
  - Uterine cancer [Unknown]
  - Chemotherapy [Unknown]
  - Malaise [Unknown]
  - Fatigue [Unknown]
